FAERS Safety Report 20102093 (Version 2)
Quarter: 2022Q1

REPORT INFORMATION
  Report Type: Report from Study
  Country: US (occurrence: US)
  Receive Date: 20211123
  Receipt Date: 20220217
  Transmission Date: 20220423
  Serious: Yes (Other)
  Sender: FDA-Public Use
  Company Number: US-SEATTLE GENETICS-2021SGN00122

PATIENT
  Age: 70 Year
  Sex: Female

DRUGS (25)
  1. TUCATINIB [Suspect]
     Active Substance: TUCATINIB
     Indication: Breast cancer female
     Dosage: 300 MG, BID
     Route: 048
     Dates: start: 20201231
  2. TUCATINIB [Suspect]
     Active Substance: TUCATINIB
     Dosage: 100 MG, BID
     Route: 065
     Dates: start: 20210211
  3. TUCATINIB [Suspect]
     Active Substance: TUCATINIB
     Dosage: 150 MG, BID
     Route: 065
     Dates: start: 20210303
  4. TUCATINIB [Suspect]
     Active Substance: TUCATINIB
     Dosage: 50 MG
     Route: 065
  5. TUCATINIB [Suspect]
     Active Substance: TUCATINIB
     Dosage: UNK
     Route: 048
     Dates: end: 20220214
  6. XELODA [Suspect]
     Active Substance: CAPECITABINE
     Indication: Breast cancer female
     Route: 065
  7. HERCEPTIN [Suspect]
     Active Substance: TRASTUZUMAB
     Indication: Breast cancer female
     Route: 065
  8. CAPECITABINE [Suspect]
     Active Substance: CAPECITABINE
     Indication: Breast cancer female
     Route: 065
  9. GABAPENTIN [Suspect]
     Active Substance: GABAPENTIN
     Indication: Herpes zoster
     Route: 065
  10. DULOXETINE HYDROCHLORIDE [Concomitant]
     Active Substance: DULOXETINE HYDROCHLORIDE
     Dosage: 30 MG, QHS
     Route: 048
     Dates: start: 20190612
  11. FUROSEMIDE [Concomitant]
     Active Substance: FUROSEMIDE
     Indication: Peripheral swelling
     Dosage: 20 MG, PRN
     Route: 048
     Dates: start: 20200602
  12. LACTULOSE [Concomitant]
     Active Substance: LACTULOSE
     Indication: Constipation
     Dosage: 15 ML, PRN
     Route: 048
     Dates: start: 20200413
  13. LORAZEPAM [Concomitant]
     Active Substance: LORAZEPAM
     Indication: Insomnia
     Dosage: 0.5 MG, PRN
     Route: 048
     Dates: start: 20151208
  14. METOPROLOL SUCCINATE [Concomitant]
     Active Substance: METOPROLOL SUCCINATE
     Dosage: 50 MG, QD
     Route: 048
     Dates: start: 20161202
  15. NITROFURANTOIN MACROCRYSTALS [Concomitant]
     Active Substance: NITROFURANTOIN
     Dosage: 50 MG, QD
     Route: 048
     Dates: start: 20200810
  16. NYSTATIN [Concomitant]
     Active Substance: NYSTATIN
     Dosage: 1 DF, QID
     Route: 048
     Dates: start: 20190211
  17. ONDANSETRON HCL [Concomitant]
     Active Substance: ONDANSETRON HYDROCHLORIDE
     Indication: Nausea
     Dosage: 8 MG, PRN
     Route: 048
     Dates: start: 20190109
  18. ONDANSETRON HCL [Concomitant]
     Active Substance: ONDANSETRON HYDROCHLORIDE
     Indication: Vomiting
  19. PANTOPRAZOLE SODIUM [Concomitant]
     Active Substance: PANTOPRAZOLE SODIUM
     Dosage: 40 MG, BID
     Route: 048
     Dates: start: 20150119
  20. POTASSIUM CHLORIDE [Concomitant]
     Active Substance: POTASSIUM CHLORIDE
     Dosage: 20 MEQ, QID
     Route: 048
     Dates: start: 20191120
  21. PREDNISONE [Concomitant]
     Active Substance: PREDNISONE
     Dosage: 1 DF, QD
     Route: 048
     Dates: start: 20140514
  22. PROCHLORPERAZINE MALEATE [Concomitant]
     Active Substance: PROCHLORPERAZINE MALEATE
     Dosage: 10 MG, PRN
     Route: 048
     Dates: start: 20111011
  23. SUCRALFATE [Concomitant]
     Active Substance: SUCRALFATE
     Dosage: 1 DF, QID
     Route: 048
     Dates: start: 20210108
  24. VITAMIN B12                        /00056201/ [Concomitant]
     Dosage: 100 ?G, QD
     Route: 048
     Dates: start: 20160927
  25. CEPHALEXIN [Concomitant]
     Active Substance: CEPHALEXIN
     Indication: Herpes zoster
     Route: 065

REACTIONS (17)
  - Hepatic neoplasm [Unknown]
  - Haematemesis [Unknown]
  - Oesophageal ulcer [Unknown]
  - Pruritus [Unknown]
  - Vascular injury [Unknown]
  - Skin haemorrhage [Unknown]
  - Swelling [Unknown]
  - Herpes zoster [Recovered/Resolved]
  - Neoplasm progression [Unknown]
  - Liver function test abnormal [Unknown]
  - Hiatus hernia [Unknown]
  - Asthenia [Recovering/Resolving]
  - Hypotension [Recovering/Resolving]
  - Rash pruritic [Unknown]
  - Epistaxis [Unknown]
  - Rash [Unknown]
  - Diarrhoea [Recovering/Resolving]

NARRATIVE: CASE EVENT DATE: 20210719
